FAERS Safety Report 5411532-1 (Version None)
Quarter: 2007Q3

REPORT INFORMATION
  Report Type: 
  Country: None (occurrence: None)
  Receive Date: 20070810
  Receipt Date: 20070809
  Transmission Date: 20080115
  Serious: Yes (Hospitalization)
  Sender: FDA-Public Use
  Company Number: US-ROXANE LABORATORIES, INC-2007-DE-04700GD

PATIENT
  Age: 52 Year
  Sex: Male

DRUGS (2)
  1. MORPHINE [Suspect]
     Indication: BREAKTHROUGH PAIN
     Route: 048
  2. METHADONE HCL [Suspect]
     Indication: PAIN
     Route: 048

REACTIONS (4)
  - CONSTIPATION [None]
  - DISTURBANCE IN ATTENTION [None]
  - DRUG INEFFECTIVE [None]
  - SEDATION [None]
